FAERS Safety Report 4616746-6 (Version None)
Quarter: 2005Q1

REPORT INFORMATION
  Report Type: 
  Country: None (occurrence: None)
  Receive Date: 20050321
  Receipt Date: 20050307
  Transmission Date: 20050727
  Serious: Yes (Hospitalization, Other)
  Sender: FDA-Public Use
  Company Number: FR-2004-035688

PATIENT
  Age: 34 Year
  Sex: Female
  Weight: 57 kg

DRUGS (1)
  1. MIRENA [Suspect]
     Indication: CONTRACEPTION
     Dosage: 20 UG/DAY, CONT, INTRA-UTERINE
     Route: 015
     Dates: start: 20040924, end: 20041017

REACTIONS (8)
  - BETA HAEMOLYTIC STREPTOCOCCAL INFECTION [None]
  - GENITAL HAEMORRHAGE [None]
  - IUCD COMPLICATION [None]
  - LOSS OF CONSCIOUSNESS [None]
  - MALAISE [None]
  - METRORRHAGIA [None]
  - PAIN [None]
  - PELVIC PAIN [None]
